FAERS Safety Report 5660509-X (Version None)
Quarter: 2008Q1

REPORT INFORMATION
  Report Type: 
  Country: None (occurrence: None)
  Receive Date: 20080306
  Receipt Date: 20080228
  Transmission Date: 20080703
  Serious: Yes (Hospitalization)
  Sender: FDA-Public Use
  Company Number: 2008-01611

PATIENT
  Age: 71 Year
  Sex: Female

DRUGS (4)
  1. FIORINAL [Suspect]
     Indication: MYOCARDIAL INFARCTION
     Dosage: ASA 100 MG/DAY, ORAL
     Route: 048
  2. ENALAPRIL MALEATE                                    (ENALAPRIL MALEAT [Suspect]
     Indication: MYOCARDIAL INFARCTION
     Dosage: 20 MG, DAILY, ORAL
     Route: 048
  3. NADROPARIN            (NADROPARIN) [Suspect]
     Indication: MYOCARDIAL INFARCTION
     Dosage: WEIGHT-ADJUSTED DOSE OF 2 X0.6ML
  4. CONTRAST MEDIUM                    (UNSPECIFIED) [Suspect]
     Indication: CARDIAC VENTRICULOGRAM LEFT
     Dosage: 300 ML

REACTIONS (4)
  - HAEMODIALYSIS [None]
  - RENAL FAILURE [None]
  - RENAL TUBULAR NECROSIS [None]
  - RETROPERITONEAL HAEMORRHAGE [None]
